FAERS Safety Report 7173363-4 (Version None)
Quarter: 2010Q4

REPORT INFORMATION
  Report Type: 
  Country: None (occurrence: None)
  Receive Date: 20101202
  Receipt Date: 20101125
  Transmission Date: 20110411
  Serious: Yes (Other)
  Sender: FDA-Public Use
  Company Number: GER/UKI/10/0016766

PATIENT
  Sex: Female

DRUGS (1)
  1. NAPROXEN [Suspect]
     Indication: BACK PAIN

REACTIONS (3)
  - DYSARTHRIA [None]
  - DYSPHONIA [None]
  - ECONOMIC PROBLEM [None]
